FAERS Safety Report 20861753 (Version 1)
Quarter: 2022Q2

REPORT INFORMATION
  Report Type: Spontaneous
  Country: PT (occurrence: PT)
  Receive Date: 20220523
  Receipt Date: 20220523
  Transmission Date: 20220721
  Serious: Yes (Other)
  Sender: FDA-Public Use
  Company Number: PT-MYLANLABS-2022M1037535

PATIENT
  Age: 76 Year
  Sex: Female

DRUGS (1)
  1. DOXORUBICIN [Suspect]
     Active Substance: DOXORUBICIN
     Indication: Breast angiosarcoma
     Dosage: 40 MILLIGRAM/SQ. METER, Q21D
     Route: 065

REACTIONS (1)
  - Toxic skin eruption [Recovered/Resolved]
